FAERS Safety Report 5509959-2 (Version None)
Quarter: 2007Q4

REPORT INFORMATION
  Report Type: 
  Country: None (occurrence: None)
  Receive Date: 20071107
  Receipt Date: 20071107
  Transmission Date: 20080405
  Serious: Yes (Hospitalization, Disabling)
  Sender: FDA-Public Use
  Company Number: None

PATIENT
  Age: 72 Year
  Sex: Female
  Weight: 107.9561 kg

DRUGS (6)
  1. METOLAZONE [Suspect]
     Indication: HYPERTENSION
     Dosage: 5MG DAILY PO
     Route: 048
  2. CELOCOXIB [Concomitant]
  3. FLUTICAZONE/SALMETEROL [Concomitant]
  4. TYLENOL -ACETAMINOPHEN- ARTHRITIS [Concomitant]
  5. DOCUSATE [Concomitant]
  6. ASPIRIN [Concomitant]

REACTIONS (2)
  - HYPOKALAEMIA [None]
  - MUSCLE SPASMS [None]
